FAERS Safety Report 4329199-2 (Version None)
Quarter: 2004Q1

REPORT INFORMATION
  Report Type: 
  Country: None (occurrence: None)
  Receive Date: 20040319
  Receipt Date: 20031208
  Transmission Date: 20041129
  Serious: No
  Sender: FDA-Public Use
  Company Number: US-JNJFOC-20031202634

PATIENT
  Age: 22 Year
  Sex: Female
  Weight: 49.8957 kg

DRUGS (4)
  1. ORTHO EVRA [Suspect]
     Indication: CONTRACEPTION
     Dosage: 1 DOSE(S), 3 IN 4 WEEK, TRANSDERMAL
     Route: 062
  2. ALLEGRA D (ALLEGRA-D) TABLETS [Concomitant]
  3. FLONASE (FLUTICASONE PROPIONATE) SPRAY [Concomitant]
  4. PATANOL (OLOPTADINE HYDROCHLORIDE) DROPS [Concomitant]

REACTIONS (3)
  - ASTHENIA [None]
  - DIZZINESS [None]
  - NAUSEA [None]
